FAERS Safety Report 6937478-5 (Version None)
Quarter: 2010Q3

REPORT INFORMATION
  Report Type: 
  Country: None (occurrence: None)
  Receive Date: 20100823
  Receipt Date: 20100816
  Transmission Date: 20110219
  Serious: Yes (Other)
  Sender: FDA-Public Use
  Company Number: US-AMGEN-QUU415428

PATIENT
  Sex: Male

DRUGS (1)
  1. NPLATE [Suspect]
     Indication: IDIOPATHIC THROMBOCYTOPENIC PURPURA
     Dates: start: 20091208, end: 20100309

REACTIONS (5)
  - BIOPSY BONE MARROW ABNORMAL [None]
  - DRUG INEFFECTIVE [None]
  - HAEMATOLOGICAL MALIGNANCY [None]
  - MYELODYSPLASTIC SYNDROME [None]
  - PLATELET COUNT DECREASED [None]
